FAERS Safety Report 25458500 (Version 1)
Quarter: 2025Q2

REPORT INFORMATION
  Report Type: Spontaneous
  Country: TR (occurrence: TR)
  Receive Date: 20250620
  Receipt Date: 20250620
  Transmission Date: 20250717
  Serious: Yes (Disabling, Other)
  Sender: NOVO NORDISK
  Company Number: TR-NOVOPROD-1458902

PATIENT
  Sex: Female

DRUGS (1)
  1. OZEMPIC [Suspect]
     Active Substance: SEMAGLUTIDE
     Indication: Product used for unknown indication

REACTIONS (1)
  - Blindness [Recovered/Resolved]

NARRATIVE: CASE EVENT DATE: 20250331
